FAERS Safety Report 7475496-1 (Version None)
Quarter: 2011Q2

REPORT INFORMATION
  Report Type: 
  Country: None (occurrence: None)
  Receive Date: 20110512
  Receipt Date: 20110503
  Transmission Date: 20111010
  Serious: Yes (Other)
  Sender: FDA-Public Use
  Company Number: PHHY2011BR38706

PATIENT
  Sex: Female

DRUGS (2)
  1. PURAN T4 [Concomitant]
     Indication: HYPERTHYROIDISM
     Dosage: 75 MG, QD
     Route: 048
  2. EXFORGE [Suspect]
     Indication: HYPERTENSION
     Dosage: 1 DF, QD
     Route: 048

REACTIONS (6)
  - DIZZINESS [None]
  - BLOOD PRESSURE DECREASED [None]
  - BIPOLAR DISORDER [None]
  - CRIME [None]
  - CRYING [None]
  - DEPRESSION [None]
